FAERS Safety Report 20765509 (Version 2)
Quarter: 2023Q4

REPORT INFORMATION
  Report Type: Spontaneous
  Country: US (occurrence: US)
  Receive Date: 20220428
  Receipt Date: 20231110
  Transmission Date: 20240110
  Serious: No
  Sender: FDA-Public Use
  Company Number: US-SA-SAC20220426000088

PATIENT
  Age: 63 Year
  Sex: Female
  Weight: 95.25 kg

DRUGS (2)
  1. DUPIXENT [Suspect]
     Active Substance: DUPILUMAB
     Indication: Dermatitis allergic
     Dosage: 300 MG
     Route: 058
     Dates: start: 20220405, end: 20220405
  2. DUPIXENT [Suspect]
     Active Substance: DUPILUMAB
     Dosage: 300 MG, QOW
     Route: 058
     Dates: start: 20220420

REACTIONS (8)
  - Limb discomfort [Unknown]
  - Weight increased [Unknown]
  - Emotional distress [Unknown]
  - Fatigue [Unknown]
  - Eye pruritus [Unknown]
  - Pruritus [Recovered/Resolved]
  - Pruritus [Unknown]
  - Incorrect dose administered [Unknown]

NARRATIVE: CASE EVENT DATE: 20220401
